FAERS Safety Report 17659425 (Version 1)
Quarter: 2020Q2

REPORT INFORMATION
  Report Type: Spontaneous
  Country: US (occurrence: US)
  Receive Date: 20200413
  Receipt Date: 20200413
  Transmission Date: 20200713
  Serious: No
  Sender: FDA-Public Use
  Company Number: US-BION-008254

PATIENT
  Age: 81 Year
  Sex: Female

DRUGS (1)
  1. ALEVE [Suspect]
     Active Substance: NAPROXEN SODIUM
     Indication: PAIN
     Dosage: 1 LIQUID GEL?BULK LOT: 1222825I
     Route: 048
     Dates: end: 20190910

REACTIONS (2)
  - Product contamination [Unknown]
  - Poor quality product administered [Not Recovered/Not Resolved]
